FAERS Safety Report 6224460-9 (Version None)
Quarter: 2009Q2

REPORT INFORMATION
  Report Type: 
  Country: None (occurrence: None)
  Receive Date: 20090612
  Receipt Date: 20090318
  Transmission Date: 20091009
  Serious: No
  Sender: FDA-Public Use
  Company Number: US-ABBOTT-09P-163-0563523-00

PATIENT
  Sex: Female
  Weight: 59.928 kg

DRUGS (2)
  1. HUMIRA [Suspect]
     Indication: PSORIASIS
     Route: 058
  2. TYLENOL (CAPLET) [Concomitant]
     Indication: HEADACHE
     Route: 048

REACTIONS (1)
  - PSORIASIS [None]
